APPROVED DRUG PRODUCT: MAGNESIUM SULFATE IN DEXTROSE 5% IN PLASTIC CONTAINER
Active Ingredient: MAGNESIUM SULFATE
Strength: 1GM/100ML
Dosage Form/Route: INJECTABLE;INJECTION
Application: A207349 | Product #001 | TE Code: AP
Applicant: HQ SPECIALTY PHARMA CORP
Approved: Mar 2, 2016 | RLD: No | RS: No | Type: RX